APPROVED DRUG PRODUCT: RENOVA
Active Ingredient: TRETINOIN
Strength: 0.02%
Dosage Form/Route: CREAM;TOPICAL
Application: N021108 | Product #001
Applicant: VALEANT PHARMACEUTICALS NORTH AMERICA LLC
Approved: Aug 31, 2000 | RLD: Yes | RS: Yes | Type: RX